FAERS Safety Report 13639450 (Version 1)
Quarter: 2017Q2

REPORT INFORMATION
  Report Type: Spontaneous
  Country: US (occurrence: US)
  Receive Date: 20170609
  Receipt Date: 20170609
  Transmission Date: 20170830
  Serious: No
  Sender: FDA-Public Use
  Company Number: US-ROCHE-1454396

PATIENT
  Sex: Female

DRUGS (1)
  1. KLONOPIN [Suspect]
     Active Substance: CLONAZEPAM
     Indication: INSOMNIA
     Route: 048

REACTIONS (4)
  - Insomnia [Not Recovered/Not Resolved]
  - Paradoxical drug reaction [Not Recovered/Not Resolved]
  - Nervousness [Not Recovered/Not Resolved]
  - Incorrect dose administered [Unknown]
